FAERS Safety Report 9553125 (Version 2)
Quarter: 2013Q3

REPORT INFORMATION
  Report Type: Spontaneous
  Country: US (occurrence: None)
  Receive Date: 20130913
  Receipt Date: 20130919
  Transmission Date: 20140515
  Serious: Yes (Other)
  Sender: FDA-Public Use
  Company Number: 2013037949

PATIENT
  Age: 24 Month
  Sex: 0

DRUGS (1)
  1. HUMATE-P (ANTIHEMOPHILIC FACTOR (HUMAN) VWF, DRIED, PASTEURIZED) [Suspect]
     Indication: VON WILLEBRAND^S DISEASE

REACTIONS (1)
  - Anaphylactic reaction [None]
